FAERS Safety Report 15606017 (Version 2)
Quarter: 2018Q4

REPORT INFORMATION
  Report Type: Spontaneous
  Country: US (occurrence: US)
  Receive Date: 20181112
  Receipt Date: 20181228
  Transmission Date: 20190205
  Serious: No
  Sender: FDA-Public Use
  Company Number: US-GLENMARK PHARMACEUTICALS-2018GMK038139

PATIENT

DRUGS (4)
  1. PRILOCAINE [Concomitant]
     Active Substance: PRILOCAINE
     Indication: HYPOAESTHESIA
     Dosage: UNK
     Route: 065
  2. LIDOCAINE OINTMENT USP 5% [Suspect]
     Active Substance: LIDOCAINE
     Indication: HYPOAESTHESIA
     Dosage: UNK
     Route: 061
     Dates: start: 2018
  3. PRILOCAINE [Concomitant]
     Active Substance: PRILOCAINE
     Indication: DIALYSIS
  4. LIDOCAINE OINTMENT USP 5% [Suspect]
     Active Substance: LIDOCAINE
     Indication: DIALYSIS

REACTIONS (1)
  - Drug ineffective for unapproved indication [Unknown]
